FAERS Safety Report 13779279 (Version 1)
Quarter: 2017Q3

REPORT INFORMATION
  Report Type: Spontaneous
  Country: DE (occurrence: DE)
  Receive Date: 20170721
  Receipt Date: 20170721
  Transmission Date: 20171127
  Serious: Yes (Other)
  Sender: FDA-Public Use
  Company Number: DE-AUROBINDO-AUR-APL-2017-19953

PATIENT
  Age: 11 Year
  Sex: Male

DRUGS (2)
  1. VERAPAMIL [Suspect]
     Active Substance: VERAPAMIL HYDROCHLORIDE
     Indication: VENTRICULAR TACHYCARDIA
     Dosage: 120 MG, ONCE A DAY
  2. BISOPROLOL FILM-COATED TABLETS [Suspect]
     Active Substance: BISOPROLOL
     Indication: VENTRICULAR TACHYCARDIA
     Dosage: 5 MG, ONCE A DAY
     Route: 065

REACTIONS (2)
  - Bradycardia [Recovered/Resolved]
  - Chronotropic incompetence [Unknown]
